FAERS Safety Report 11640644 (Version 2)
Quarter: 2015Q4

REPORT INFORMATION
  Report Type: Report from Study
  Country: IL (occurrence: IL)
  Receive Date: 20151019
  Receipt Date: 20151029
  Transmission Date: 20160304
  Serious: Yes (Hospitalization)
  Sender: FDA-Public Use
  Company Number: IL-BAXALTA-2015BLT002168

PATIENT
  Age: 26 Year
  Sex: Male
  Weight: 72 kg

DRUGS (7)
  1. PEGYLATED RECOMBINANT HUMAN FACTOR VIII [Suspect]
     Active Substance: RURIOCTOCOG ALFA PEGOL
     Dosage: 2014 IU IV ONCE
     Route: 042
     Dates: start: 20151009
  2. PEGYLATED RECOMBINANT HUMAN FACTOR VIII [Suspect]
     Active Substance: RURIOCTOCOG ALFA PEGOL
     Indication: PROPHYLAXIS
     Dosage: 2014 IU IV ONCE; LAST ADMINISTRATION PRIOR TO EVENT
     Route: 042
     Dates: start: 20151008
  3. AMOXICILLIN TRIHYDRATE [Concomitant]
     Active Substance: AMOXICILLIN
     Dosage: 500 MG, 3X A DAY
     Route: 048
     Dates: start: 20151009, end: 20151014
  4. PEGYLATED RECOMBINANT HUMAN FACTOR VIII [Suspect]
     Active Substance: RURIOCTOCOG ALFA PEGOL
     Indication: FACTOR VIII DEFICIENCY
     Dosage: 3774 IU, IV ONCE- 1ST ADMINISTRATION
     Route: 042
     Dates: start: 20140617, end: 20140617
  5. PEGYLATED RECOMBINANT HUMAN FACTOR VIII [Suspect]
     Active Substance: RURIOCTOCOG ALFA PEGOL
     Dosage: 60 IU/KG, 2X A WEEK
     Dates: start: 20151012
  6. AMOXICILLIN TRIHYDRATE [Concomitant]
     Active Substance: AMOXICILLIN
     Indication: INFECTION PROPHYLAXIS
     Dosage: 500 MG, ONCE
     Route: 048
     Dates: start: 20151008, end: 20151008
  7. PEGYLATED RECOMBINANT HUMAN FACTOR VIII [Suspect]
     Active Substance: RURIOCTOCOG ALFA PEGOL
     Dosage: 2014 IU IV ONCE
     Route: 042
     Dates: start: 20151010

REACTIONS (1)
  - Anaemia [Recovered/Resolved with Sequelae]

NARRATIVE: CASE EVENT DATE: 20151008
